FAERS Safety Report 6683568-4 (Version None)
Quarter: 2010Q2

REPORT INFORMATION
  Report Type: 
  Country: None (occurrence: None)
  Receive Date: 20100413
  Receipt Date: 20100401
  Transmission Date: 20101027
  Serious: Yes (Hospitalization, Other)
  Sender: FDA-Public Use
  Company Number: 1000012559

PATIENT
  Age: 16 Year
  Sex: Female
  Weight: 55.5 kg

DRUGS (4)
  1. CITALOPRAM HYDROBROMIDE [Suspect]
     Indication: DEPRESSION
     Dosage: (180 MG,ONCE),ORAL;(20 MG), ORAL
     Route: 048
     Dates: start: 20091201, end: 20100204
  2. CITALOPRAM HYDROBROMIDE [Suspect]
     Indication: DEPRESSION
     Dosage: (180 MG,ONCE),ORAL;(20 MG), ORAL
     Route: 048
     Dates: start: 20100205, end: 20100205
  3. MIRTAZAPINE [Suspect]
     Indication: DEPRESSION
     Dosage: (150 MG,ONCE),ORAL; (15 MG), ORAL
     Route: 048
     Dates: start: 20100202, end: 20100204
  4. MIRTAZAPINE [Suspect]
     Indication: DEPRESSION
     Dosage: (150 MG,ONCE),ORAL; (15 MG), ORAL
     Route: 048
     Dates: start: 20100205, end: 20100205

REACTIONS (12)
  - ACNE [None]
  - BLOOD PH DECREASED [None]
  - DIZZINESS [None]
  - ELECTROCARDIOGRAM QT PROLONGED [None]
  - HYPOKALAEMIA [None]
  - MULTIPLE DRUG OVERDOSE INTENTIONAL [None]
  - NAUSEA [None]
  - OFF LABEL USE [None]
  - PALLOR [None]
  - SCRATCH [None]
  - SOMNOLENCE [None]
  - SUICIDE ATTEMPT [None]
